FAERS Safety Report 7196883-5 (Version None)
Quarter: 2010Q4

REPORT INFORMATION
  Report Type: 
  Country: None (occurrence: None)
  Receive Date: 20101223
  Receipt Date: 20101203
  Transmission Date: 20110411
  Serious: No
  Sender: FDA-Public Use
  Company Number: US-AMGEN-KDL442518

PATIENT

DRUGS (3)
  1. ENBREL [Suspect]
     Indication: PSORIASIS
     Dosage: 50 MG, QWK
     Dates: start: 20030924
  2. ENBREL [Suspect]
     Indication: RHEUMATOID ARTHRITIS
     Dosage: 50 MG, QWK
     Dates: start: 20030924, end: 20100101
  3. UNSPECIFIED MEDICATION [Concomitant]

REACTIONS (4)
  - CONSTIPATION [None]
  - NASOPHARYNGITIS [None]
  - RHEUMATOID ARTHRITIS [None]
  - SINUSITIS [None]
